FAERS Safety Report 6781256-7 (Version None)
Quarter: 2010Q2

REPORT INFORMATION
  Report Type: 
  Country: None (occurrence: None)
  Receive Date: 20100621
  Receipt Date: 20100608
  Transmission Date: 20101027
  Serious: Yes (Hospitalization, Other)
  Sender: FDA-Public Use
  Company Number: PHHY2010US37450

PATIENT
  Sex: Male

DRUGS (2)
  1. EXJADE [Suspect]
     Indication: BLOOD DISORDER
     Dosage: 1500 MG, QD
     Route: 048
  2. EXJADE [Suspect]
     Indication: LYMPHATIC DISORDER

REACTIONS (6)
  - ATRIAL FIBRILLATION [None]
  - CARDIAC FAILURE CONGESTIVE [None]
  - LEUKAEMIA [None]
  - PLEURAL EFFUSION [None]
  - RESPIRATORY FAILURE [None]
  - STEM CELL TRANSPLANT [None]
